FAERS Safety Report 20473612 (Version 1)
Quarter: 2022Q1

REPORT INFORMATION
  Report Type: Report from Study
  Country: EG (occurrence: EG)
  Receive Date: 20220215
  Receipt Date: 20220215
  Transmission Date: 20220423
  Serious: Yes (Other)
  Sender: FDA-Public Use
  Company Number: EG-NOVARTISPH-NVSC2022EG025663

PATIENT
  Sex: Female

DRUGS (6)
  1. GILENYA [Suspect]
     Active Substance: FINGOLIMOD HYDROCHLORIDE
     Indication: Multiple sclerosis
     Dosage: 0.5 MG, QD
     Route: 048
     Dates: start: 2015
  2. FOLIC ACID [Concomitant]
     Active Substance: FOLIC ACID
     Indication: Nerve injury
     Dosage: 1 DOSAGE FORM, QD
     Route: 048
     Dates: start: 2019
  3. NEUROTONE [Concomitant]
     Indication: Nerve injury
     Dosage: 3 DOSAGE FORM, QD (3 TAB PER DAY THAN 1 TAB PER DAY)
     Route: 048
     Dates: start: 2015
  4. NEUROTONE [Concomitant]
     Dosage: 1 DOSAGE FORM, QD
     Route: 048
  5. OMEGA 3 PLUS [Concomitant]
     Indication: Vitamin supplementation
     Dosage: 1 DOSAGE FORM, QD
     Route: 048
     Dates: end: 2020
  6. VITAMIN D3 [Concomitant]
     Active Substance: CHOLECALCIFEROL
     Indication: Vitamin supplementation
     Dosage: 1 DOSAGE FORM, QD
     Route: 048
     Dates: start: 2010

REACTIONS (10)
  - White blood cell count decreased [Recovering/Resolving]
  - Multiple sclerosis [Recovering/Resolving]
  - Pain in extremity [Recovering/Resolving]
  - Muscular weakness [Recovering/Resolving]
  - Muscle tightness [Recovering/Resolving]
  - Optic neuritis [Recovering/Resolving]
  - Vision blurred [Recovering/Resolving]
  - Muscle twitching [Not Recovered/Not Resolved]
  - Pain [Not Recovered/Not Resolved]
  - Inappropriate schedule of product administration [Recovering/Resolving]

NARRATIVE: CASE EVENT DATE: 20150101
